FAERS Safety Report 9023406 (Version 1)
Quarter: 2013Q1

REPORT INFORMATION
  Report Type: Spontaneous
  Country: US (occurrence: US)
  Receive Date: 20130121
  Receipt Date: 20130121
  Transmission Date: 20140127
  Serious: Yes (Hospitalization, Other)
  Sender: FDA-Public Use
  Company Number: US-ABBOTT-13P-163-1035211-00

PATIENT
  Age: 15 Year
  Sex: Female

DRUGS (5)
  1. NIASPAN [Suspect]
     Indication: DRUG SCREEN POSITIVE
  2. ACICLOVIR [Suspect]
     Indication: PRODUCT USED FOR UNKNOWN INDICATION
  3. ESCITALOPRAM [Concomitant]
     Indication: PRODUCT USED FOR UNKNOWN INDICATION
  4. LAMOTRIGINE [Concomitant]
     Indication: PRODUCT USED FOR UNKNOWN INDICATION
  5. RISPERIDONE [Concomitant]
     Indication: PRODUCT USED FOR UNKNOWN INDICATION

REACTIONS (6)
  - Status epilepticus [Recovered/Resolved]
  - Metabolic acidosis [Recovered/Resolved]
  - Leukocytosis [Recovered/Resolved]
  - Overdose [Recovered/Resolved]
  - Blood creatinine increased [Recovered/Resolved]
  - Hepatic enzyme increased [Recovered/Resolved]
